FAERS Safety Report 11818307 (Version 1)
Quarter: 2015Q4

REPORT INFORMATION
  Report Type: Spontaneous
  Country: US (occurrence: None)
  Receive Date: 20151209
  Receipt Date: 20151209
  Transmission Date: 20160305
  Serious: Yes (Hospitalization)
  Sender: FDA-Public Use
  Company Number: None

PATIENT
  Age: 64 Year
  Sex: Female
  Weight: 52.8 kg

DRUGS (13)
  1. COLACE [Concomitant]
     Active Substance: DOCUSATE SODIUM
  2. ZOLOFT [Concomitant]
     Active Substance: SERTRALINE HYDROCHLORIDE
  3. BC [Suspect]
     Active Substance: ASPIRIN\CAFFEINE
     Indication: OSTEOARTHRITIS
     Route: 048
  4. TRIGLIDE [Concomitant]
     Active Substance: FENOFIBRATE
  5. CENTRUM [Concomitant]
     Active Substance: VITAMINS
  6. ZOCOR [Concomitant]
     Active Substance: SIMVASTATIN
  7. NORCO [Concomitant]
     Active Substance: ACETAMINOPHEN\HYDROCODONE BITARTRATE
  8. ANTIVERT [Concomitant]
     Active Substance: MECLIZINE HYDROCHLORIDE
  9. FLONASE [Concomitant]
     Active Substance: FLUTICASONE PROPIONATE
  10. VITAMIN B12 [Concomitant]
     Active Substance: CYANOCOBALAMIN
  11. CA CARB+ VITD [Concomitant]
  12. PROTONIX [Concomitant]
     Active Substance: PANTOPRAZOLE SODIUM
  13. LYRICA [Concomitant]
     Active Substance: PREGABALIN

REACTIONS (3)
  - Upper gastrointestinal haemorrhage [None]
  - Gastric ulcer [None]
  - Haemorrhagic anaemia [None]

NARRATIVE: CASE EVENT DATE: 20150812
